FAERS Safety Report 6075310-5 (Version None)
Quarter: 2009Q1

REPORT INFORMATION
  Report Type: 
  Country: None (occurrence: None)
  Receive Date: 20090121
  Receipt Date: 20080208
  Transmission Date: 20090719
  Serious: Yes (Other)
  Sender: FDA-Public Use
  Company Number: US-WYE-H02538908

PATIENT
  Age: 80 Year
  Sex: Female

DRUGS (1)
  1. PREMPRO [Suspect]
     Dosage: ^FOR YEARS^

REACTIONS (1)
  - BREAST CANCER [None]
